FAERS Safety Report 8301020-7 (Version None)
Quarter: 2012Q2

REPORT INFORMATION
  Report Type: 
  Country: None (occurrence: None)
  Receive Date: 20120420
  Receipt Date: 20120413
  Transmission Date: 20120825
  Serious: Yes (Hospitalization)
  Sender: FDA-Public Use
  Company Number: US-AMGEN-USASP2011040045

PATIENT
  Age: 49 Year
  Sex: Female

DRUGS (1)
  1. ENBREL [Suspect]
     Indication: RHEUMATOID ARTHRITIS
     Dosage: 50 MG, QWK
     Dates: start: 20040101

REACTIONS (7)
  - ROAD TRAFFIC ACCIDENT [None]
  - DRUG DOSE OMISSION [None]
  - NODULE [None]
  - ARTHROPATHY [None]
  - RHEUMATOID ARTHRITIS [None]
  - ARTHRALGIA [None]
  - ANKLE FRACTURE [None]
